FAERS Safety Report 9135721 (Version 1)
Quarter: 2013Q1

REPORT INFORMATION
  Report Type: Spontaneous
  Country: US (occurrence: US)
  Receive Date: 20130304
  Receipt Date: 20130304
  Transmission Date: 20140127
  Serious: No
  Sender: FDA-Public Use
  Company Number: US-009507513-1302USA011633

PATIENT
  Age: 26 Year
  Sex: Female

DRUGS (4)
  1. TRAZODONE HYDROCHLORIDE [Concomitant]
  2. ZANTAC [Concomitant]
  3. NEXPLANON [Suspect]
     Indication: CONTRACEPTION
     Dosage: 1 DF, UNK
     Route: 059
     Dates: start: 20130131
  4. ZOLOFT [Concomitant]

REACTIONS (2)
  - Implant site rash [Not Recovered/Not Resolved]
  - Implant site pruritus [Not Recovered/Not Resolved]
